FAERS Safety Report 4388860-4 (Version None)
Quarter: 2004Q2

REPORT INFORMATION
  Report Type: 
  Country: None (occurrence: None)
  Receive Date: 20040628
  Receipt Date: 20040616
  Transmission Date: 20050107
  Serious: Yes (Other)
  Sender: FDA-Public Use
  Company Number: 2004040775

PATIENT
  Sex: Female

DRUGS (3)
  1. ZOLOFT [Suspect]
     Indication: PANIC ATTACK
     Dosage: 150 MG (1 IN 1 D), ORAL
     Route: 048
     Dates: start: 20030401
  2. ANOVLAR (ETHINYLESTRADIOL, NORETHISTERONE ACETATE) [Concomitant]
  3. SUMATRIPTAN SUCCINATE [Concomitant]

REACTIONS (3)
  - DEAFNESS UNILATERAL [None]
  - NERVE INJURY [None]
  - TINNITUS [None]
